FAERS Safety Report 14939768 (Version 3)
Quarter: 2018Q4

REPORT INFORMATION
  Report Type: Report from Study
  Country: US (occurrence: US)
  Receive Date: 20180525
  Receipt Date: 20181013
  Transmission Date: 20190204
  Serious: No
  Sender: FDA-Public Use
  Company Number: PHEH2018US020391

PATIENT
  Sex: Female

DRUGS (2)
  1. ILARIS [Suspect]
     Active Substance: CANAKINUMAB
     Indication: STILL^S DISEASE
     Dosage: 80 MG, EVERY 4 WEEKS
     Route: 058
  2. ILARIS [Suspect]
     Active Substance: CANAKINUMAB
     Dosage: 100 MG, EVERY 30 DAYS
     Route: 058

REACTIONS (4)
  - Asthenia [Unknown]
  - Pyrexia [Unknown]
  - Feeling cold [Unknown]
  - Inappropriate schedule of product administration [Unknown]
